FAERS Safety Report 11536928 (Version 1)
Quarter: 2015Q3

REPORT INFORMATION
  Report Type: Spontaneous
  Country: US (occurrence: None)
  Receive Date: 20150921
  Receipt Date: 20150921
  Transmission Date: 20151125
  Serious: No
  Sender: FDA-Public Use
  Company Number: None

PATIENT
  Age: 11 Year
  Sex: Male
  Weight: 43.09 kg

DRUGS (2)
  1. MOTRIN [Suspect]
     Active Substance: IBUPROFEN
     Indication: COUGH
  2. MOTRIN [Suspect]
     Active Substance: IBUPROFEN
     Indication: PYREXIA

REACTIONS (6)
  - Pruritus [None]
  - Alopecia [None]
  - Contusion [None]
  - Peripheral coldness [None]
  - Pain [None]
  - Insomnia [None]

NARRATIVE: CASE EVENT DATE: 20150918
